FAERS Safety Report 17963921 (Version 1)
Quarter: 2020Q2

REPORT INFORMATION
  Report Type: Spontaneous
  Country: AR (occurrence: AR)
  Receive Date: 20200630
  Receipt Date: 20200630
  Transmission Date: 20200714
  Serious: Yes (Other)
  Sender: FDA-Public Use
  Company Number: AR-PFIZER INC-2020250053

PATIENT
  Age: 76 Year
  Sex: Female

DRUGS (1)
  1. IBRANCE [Suspect]
     Active Substance: PALBOCICLIB
     Indication: BREAST CANCER METASTATIC
     Dosage: 125 MG, CYCLIC(3X1 SCHEME DAILY)
     Dates: start: 20190208

REACTIONS (6)
  - Decreased immune responsiveness [Unknown]
  - Urinary tract infection [Unknown]
  - Asthenia [Unknown]
  - Diabetes mellitus [Unknown]
  - Infection susceptibility increased [Unknown]
  - Eye disorder [Unknown]

NARRATIVE: CASE EVENT DATE: 20200626
